FAERS Safety Report 5144466-0 (Version None)
Quarter: 2006Q4

REPORT INFORMATION
  Report Type: 
  Country: None (occurrence: None)
  Receive Date: 20061031
  Receipt Date: 20061027
  Transmission Date: 20070319
  Serious: Yes (Death)
  Sender: FDA-Public Use
  Company Number: TCI2006A04503

PATIENT
  Age: 65 Year
  Sex: Female

DRUGS (11)
  1. LANSOPRAZOLE [Suspect]
     Indication: REFLUX OESOPHAGITIS
     Dosage: 30 MG (30 MG, 1 IN 1 D) PER ORAL
     Route: 048
     Dates: start: 20060904
  2. TICLOPIDINE HYDROCHLORIDE [Suspect]
     Indication: THROMBOSIS PROPHYLAXIS
     Dosage: 200 MG (100 MG, 2 IN 1 D) PER ORAL
     Route: 048
     Dates: start: 20060929, end: 20061003
  3. ASPIRIN [Suspect]
     Indication: THROMBOSIS PROPHYLAXIS
     Dosage: 200 MG (100 MG, 2 IN 1 D) PER ORAL
     Route: 048
     Dates: start: 20061001, end: 20061003
  4. BLOPRESS TABLETS 8 (CANDESARTAN CILEXETIL) (TABLETS) [Concomitant]
  5. ALLOID G (SODIUM ALGINATE) (SOLUTION) [Concomitant]
  6. THROMBIN (SOLUTION) [Concomitant]
  7. PREDNISOLONE [Concomitant]
  8. LAC B (LACTOBACILLUS BIFIDUS, LYOPHILIZED) (POWDER) [Concomitant]
  9. PERDIPINE-LA (NICARDIPINE HYDROCHLORIDE) (CAPSULES) [Concomitant]
  10. RENIVACE (ENALAPRIL MALEATE) (TABLETS) [Concomitant]
  11. POLARAMIN (DEXCHLORPHENIRAMINE MALEATE) (TABLETS) [Concomitant]

REACTIONS (17)
  - ACIDOSIS [None]
  - ALANINE AMINOTRANSFERASE INCREASED [None]
  - ANAEMIA [None]
  - ASPARTATE AMINOTRANSFERASE INCREASED [None]
  - BLOOD PRESSURE DECREASED [None]
  - CONTINUOUS HAEMODIAFILTRATION [None]
  - CYANOSIS [None]
  - DEPRESSED LEVEL OF CONSCIOUSNESS [None]
  - DYSPNOEA [None]
  - HAEMODIALYSIS [None]
  - HEAD DISCOMFORT [None]
  - HYPOGLYCAEMIA [None]
  - LIVER DISORDER [None]
  - MULTI-ORGAN FAILURE [None]
  - NAUSEA [None]
  - PULSE ABSENT [None]
  - THROMBOTIC THROMBOCYTOPENIC PURPURA [None]
